FAERS Safety Report 10815721 (Version 1)
Quarter: 2015Q1

REPORT INFORMATION
  Report Type: Report from Study
  Country: US (occurrence: US)
  Receive Date: 20150218
  Receipt Date: 20150218
  Transmission Date: 20150721
  Serious: No
  Sender: FDA-Public Use
  Company Number: US-ABBVIE-14K-163-1286051-00

PATIENT
  Age: 25 Year
  Sex: Male

DRUGS (9)
  1. PREDNISONE. [Concomitant]
     Active Substance: PREDNISONE
  2. PREDNISONE. [Concomitant]
     Active Substance: PREDNISONE
  3. STEROIDS [Concomitant]
     Active Substance: UNSPECIFIED INGREDIENT
     Indication: PRODUCT USED FOR UNKNOWN INDICATION
  4. HUMIRA [Suspect]
     Active Substance: ADALIMUMAB
     Indication: CROHN^S DISEASE
     Dates: start: 20140708
  5. PREDNISONE. [Concomitant]
     Active Substance: PREDNISONE
     Indication: PRODUCT USED FOR UNKNOWN INDICATION
  6. PREDNISONE. [Concomitant]
     Active Substance: PREDNISONE
  7. PREDNISONE. [Concomitant]
     Active Substance: PREDNISONE
  8. PREDNISONE. [Concomitant]
     Active Substance: PREDNISONE
  9. PREDNISONE. [Concomitant]
     Active Substance: PREDNISONE
     Dates: end: 201408

REACTIONS (2)
  - Mycobacterium tuberculosis complex test positive [Unknown]
  - Weight increased [Unknown]

NARRATIVE: CASE EVENT DATE: 2014
